FAERS Safety Report 17104726 (Version 1)
Quarter: 2019Q4

REPORT INFORMATION
  Report Type: Spontaneous
  Country: US (occurrence: US)
  Receive Date: 20191107
  Receipt Date: 20191107
  Transmission Date: 20200122
  Serious: No
  Sender: FDA-Public Use
  Company Number: None

PATIENT
  Age: 66 Year
  Sex: Female
  Weight: 56.25 kg

DRUGS (7)
  1. EVISTA [Concomitant]
     Active Substance: RALOXIFENE HYDROCHLORIDE
  2. GLUCOSAMINE [Concomitant]
     Active Substance: GLUCOSAMINE
  3. FISH OIL [Concomitant]
     Active Substance: FISH OIL
  4. AMLODIPINE [Concomitant]
     Active Substance: AMLODIPINE BESYLATE
  5. CITRACAL [Concomitant]
     Active Substance: CALCIUM CITRATE
  6. SUCRALFATE. [Concomitant]
     Active Substance: SUCRALFATE
  7. PROLIA [Suspect]
     Active Substance: DENOSUMAB
     Indication: OSTEOPOROSIS
     Dosage: ?          OTHER FREQUENCY:EVERY 6 MONTHS;?
     Dates: end: 20191015

REACTIONS (3)
  - Swelling face [None]
  - Osteonecrosis of jaw [None]
  - Pain in jaw [None]

NARRATIVE: CASE EVENT DATE: 20191015
